FAERS Safety Report 8445297-6 (Version None)
Quarter: 2012Q2

REPORT INFORMATION
  Report Type: 
  Country: None (occurrence: None)
  Receive Date: 20120611
  Receipt Date: 20120601
  Transmission Date: 20120825
  Serious: Yes (Other)
  Sender: FDA-Public Use
  Company Number: 2012SP029708

PATIENT
  Age: 38 Year
  Sex: Male
  Weight: 125.5 kg

DRUGS (20)
  1. BENZYDAMINE [Concomitant]
  2. FLUPENTIXOL [Concomitant]
  3. PHENOXYMETHYLPENICILLIN [Concomitant]
  4. HYDROCHLORIDE [Concomitant]
  5. PROPRANOLOL HCL [Concomitant]
  6. CETIRIZINE HCL [Concomitant]
  7. FLUOXETINE HCL [Concomitant]
  8. CEPHALEXIN [Concomitant]
  9. CEMETIDINE [Concomitant]
  10. AMOXICILLIN AND CLAVULANATE POTASSIUM [Concomitant]
  11. DICLOFENAC SODIUM [Concomitant]
  12. MIRTAZAPINE [Suspect]
     Indication: ANXIETY
     Dosage: 15;30 MG
     Dates: start: 20120117
  13. MIRTAZAPINE [Suspect]
     Indication: ANXIETY
     Dosage: 15;30 MG
     Dates: start: 20120104, end: 20120117
  14. ERYTHROMYCIN [Concomitant]
  15. FLUCLOXACILLIN [Concomitant]
  16. FLUOXETINE HYDROCHLORIDE [Concomitant]
  17. PENICILLIN [Concomitant]
  18. ZIMOVANE [Concomitant]
  19. ZOPICLONE [Concomitant]
  20. LORAZEPAM [Concomitant]

REACTIONS (3)
  - PARANOIA [None]
  - CONFUSIONAL STATE [None]
  - IRRITABILITY [None]
